FAERS Safety Report 17976971 (Version 1)
Quarter: 2020Q3

REPORT INFORMATION
  Report Type: Spontaneous
  Country: US (occurrence: US)
  Receive Date: 20200703
  Receipt Date: 20200703
  Transmission Date: 20201103
  Serious: No
  Sender: FDA-Public Use
  Company Number: US-BRISTOL-MYERS SQUIBB COMPANY-BMS-2020-052517

PATIENT
  Sex: Male

DRUGS (1)
  1. SPRYCEL [Suspect]
     Active Substance: DASATINIB
     Indication: MYELOID LEUKAEMIA IN REMISSION
     Dosage: 100 MILLIGRAM, QD
     Route: 048
     Dates: start: 202006

REACTIONS (4)
  - Balance disorder [Unknown]
  - Arthralgia [Unknown]
  - Joint injury [Unknown]
  - Fatigue [Unknown]
